FAERS Safety Report 8464623-5 (Version None)
Quarter: 2012Q2

REPORT INFORMATION
  Report Type: 
  Country: None (occurrence: None)
  Receive Date: 20120620
  Receipt Date: 20120620
  Transmission Date: 20120825
  Serious: No
  Sender: FDA-Public Use
  Company Number: None

PATIENT
  Age: 72 Year
  Sex: Female
  Weight: 68.0396 kg

DRUGS (2)
  1. PREVACID [Suspect]
  2. PRILOSEC [Suspect]
     Indication: OESOPHAGITIS

REACTIONS (3)
  - HEADACHE [None]
  - DYSPHAGIA [None]
  - DRUG INEFFECTIVE [None]
